FAERS Safety Report 18152374 (Version 1)
Quarter: 2020Q3

REPORT INFORMATION
  Report Type: Spontaneous
  Country: US (occurrence: US)
  Receive Date: 20200814
  Receipt Date: 20200814
  Transmission Date: 20201103
  Serious: Yes (Hospitalization)
  Sender: FDA-Public Use
  Company Number: US-MYLANLABS-2020M1071654

PATIENT
  Age: 31 Year
  Sex: Male

DRUGS (1)
  1. VORICONAZOLE. [Suspect]
     Active Substance: VORICONAZOLE
     Indication: ASPERGILLUS INFECTION
     Dosage: 100 MILLIGRAM, QD
     Route: 065

REACTIONS (3)
  - Periostitis [Recovering/Resolving]
  - Cholestasis [Recovering/Resolving]
  - Hemiplegia [Recovering/Resolving]
